FAERS Safety Report 4493126-8 (Version None)
Quarter: 2004Q4

REPORT INFORMATION
  Report Type: 
  Country: None (occurrence: None)
  Receive Date: 20041104
  Receipt Date: 20040909
  Transmission Date: 20050328
  Serious: Yes (Other)
  Sender: FDA-Public Use
  Company Number: GB-BRISTOL-MYERS SQUIBB COMPANY-12697181

PATIENT
  Age: 63 Year
  Sex: Female
  Weight: 67 kg

DRUGS (10)
  1. PARAPLATIN [Suspect]
     Indication: SMALL CELL LUNG CANCER STAGE UNSPECIFIED
     Dosage: REDUCED TO 75% TO 150 MG
     Route: 042
     Dates: start: 20040803, end: 20040803
  2. VEPESID [Suspect]
     Indication: SMALL CELL LUNG CANCER STAGE UNSPECIFIED
     Dosage: REDUCED TO 75% TO 395 MG
     Route: 042
     Dates: start: 20040803, end: 20040803
  3. PEGFILGRASTIM [Suspect]
     Route: 058
     Dates: start: 20040803, end: 20040803
  4. DOMPERIDONE [Concomitant]
     Dosage: 03AUG TO 04AUG04 AND 14SEP TO 17SEP04
     Route: 048
     Dates: start: 20040803, end: 20040917
  5. DEXAMETHASONE [Concomitant]
     Dosage: 03AUG TO 04AUG04 AND 14SEP TO 17SEP04
     Route: 048
     Dates: start: 20040803, end: 20040917
  6. GRANISETRON [Concomitant]
     Dosage: 03AUG TO 04AUG04 AND 14SEP TO 17SEP04
     Route: 048
     Dates: start: 20040803, end: 20040917
  7. CIPROXIN [Concomitant]
     Dosage: 09AUG TO 25AUG04 AND 30SEP TO 15OCT04
     Dates: start: 20040809, end: 20041015
  8. FLUCONAZOLE [Concomitant]
     Dosage: 09AUG TO 25AUG04 AND 30SEP TO 15OCT04
     Route: 048
     Dates: start: 20040809, end: 20041015
  9. SIMVASTATIN [Concomitant]
     Indication: LIPIDS INCREASED
     Dosage: SEVERAL YEARS
     Route: 048
  10. NICORANDIL [Concomitant]
     Indication: BLOOD PRESSURE INCREASED
     Dosage: SEVERAL YEARS
     Route: 048

REACTIONS (4)
  - CEREBROVASCULAR ACCIDENT [None]
  - CONFUSIONAL STATE [None]
  - FEELING ABNORMAL [None]
  - NEUTROPENIA [None]
